FAERS Safety Report 9028099 (Version 1)
Quarter: 2013Q1

REPORT INFORMATION
  Report Type: Spontaneous
  Country: US (occurrence: None)
  Receive Date: 20130114
  Receipt Date: 20130114
  Transmission Date: 20140127
  Serious: Yes (Hospitalization)
  Sender: FDA-Public Use
  Company Number: None

PATIENT
  Age: 27 Year
  Sex: Male
  Weight: 90.5 kg

DRUGS (3)
  1. SULFAMETHOXAZOLE/TRIMETHOPRIM [Suspect]
     Route: 048
     Dates: start: 20121115, end: 20121119
  2. DOXYCYLINE [Concomitant]
  3. QUETIAPINE [Concomitant]

REACTIONS (6)
  - Lethargy [None]
  - Decreased activity [None]
  - Hypophagia [None]
  - Pneumonia [None]
  - Leukopenia [None]
  - Neutropenia [None]
